FAERS Safety Report 6493240-1 (Version None)
Quarter: 2009Q4

REPORT INFORMATION
  Report Type: 
  Country: None (occurrence: None)
  Receive Date: 20091211
  Receipt Date: 20091211
  Transmission Date: 20100525
  Serious: Yes (Life-Threatening)
  Sender: FDA-Public Use
  Company Number: None

PATIENT
  Age: 74 Year
  Sex: Female
  Weight: 119 kg

DRUGS (17)
  1. ALLOPURINOL 100MG TAB [Suspect]
     Dosage: 200 MG DAILY PO
     Route: 048
     Dates: start: 20080318, end: 20090330
  2. AMLODIPINE [Concomitant]
  3. FLUTICASONE NASAL [Concomitant]
  4. CYCLOBENZAPRINE [Concomitant]
  5. ALLOPURINOL [Concomitant]
  6. PIOGLITAZONE [Concomitant]
  7. SPIRONOLACTONE [Concomitant]
  8. MONTELUKAST SODIUM [Concomitant]
  9. DIGOXIN [Concomitant]
  10. FUROSEMIDE [Concomitant]
  11. ASPIRIN [Concomitant]
  12. WARFARIN SODIUM [Concomitant]
  13. MICARDIS [Concomitant]
  14. ZOLPIDEM [Concomitant]
  15. CLONIDINE [Concomitant]
  16. LEVALBUTEROL HCL [Concomitant]
  17. POTASSIUM CHLORIDE [Concomitant]

REACTIONS (3)
  - COAGULOPATHY [None]
  - PULMONARY ALVEOLAR HAEMORRHAGE [None]
  - VASCULITIS [None]
